FAERS Safety Report 7474966-X (Version None)
Quarter: 2011Q1

REPORT INFORMATION
  Report Type: 
  Country: None (occurrence: None)
  Receive Date: 20110302
  Receipt Date: 20101110
  Transmission Date: 20110831
  Serious: Yes (Other)
  Sender: FDA-Public Use
  Company Number: 163-21880-10091832

PATIENT
  Sex: Male

DRUGS (16)
  1. REVLIMID [Suspect]
     Indication: MULTIPLE MYELOMA
     Dosage: 5 MG, 1 IN 1 D, PO; 10 MG, 1 IN 1 D, PO; 5 MG, 1 IN 2 D, PO
     Route: 048
     Dates: start: 20100801
  2. REVLIMID [Suspect]
     Indication: MULTIPLE MYELOMA
     Dosage: 5 MG, 1 IN 1 D, PO; 10 MG, 1 IN 1 D, PO; 5 MG, 1 IN 2 D, PO
     Route: 048
     Dates: start: 20100901
  3. REVLIMID [Suspect]
     Indication: MULTIPLE MYELOMA
     Dosage: 5 MG, 1 IN 1 D, PO; 10 MG, 1 IN 1 D, PO; 5 MG, 1 IN 2 D, PO
     Route: 048
     Dates: start: 20100701
  4. LOPRESSOR [Concomitant]
  5. PRILOSEC [Concomitant]
  6. ALLOPURINOL [Concomitant]
  7. PERCOCET [Concomitant]
  8. CATAPRES [Concomitant]
  9. OXYCONTIN [Concomitant]
  10. LYRICA [Concomitant]
  11. SODIUM BICARBONATE IN PLASTIC CONTAINER [Concomitant]
  12. HYDRALAZINE HCL [Concomitant]
  13. FOLIC ACID [Concomitant]
  14. PHOSLO [Concomitant]
  15. COUGH SYRUP [Concomitant]
  16. NORVASC [Concomitant]

REACTIONS (1)
  - RENAL FAILURE CHRONIC [None]
